FAERS Safety Report 7769787-4 (Version None)
Quarter: 2011Q3

REPORT INFORMATION
  Report Type: 
  Country: None (occurrence: None)
  Receive Date: 20110922
  Receipt Date: 20110113
  Transmission Date: 20111222
  Serious: No
  Sender: FDA-Public Use
  Company Number: US-ASTRAZENECA-2008UW14639

PATIENT
  Age: 24 Year
  Sex: Female
  Weight: 104.3 kg

DRUGS (12)
  1. ZOLOFT [Concomitant]
     Indication: INSOMNIA
     Dosage: 50-75 MG
     Dates: start: 20050801
  2. SEROQUEL [Suspect]
     Dosage: 25 MG, 100 MG
     Route: 048
     Dates: start: 20030315, end: 20050801
  3. SEROQUEL [Suspect]
     Dosage: 25 MG, 100 MG
     Route: 048
     Dates: start: 20030315, end: 20050801
  4. ZOLOFT [Concomitant]
     Indication: DEPRESSION
     Dosage: 50-75 MG
     Dates: start: 20050801
  5. ZOLOFT [Concomitant]
     Indication: ANXIETY
     Dosage: 50-75 MG
     Dates: start: 20050801
  6. EFFEXOR [Concomitant]
     Dosage: 37.5-150 MG
     Dates: start: 20030301
  7. PAXIL [Concomitant]
  8. WELLBUTRIN [Concomitant]
  9. HYDROCHLOROTHIAZIDE [Concomitant]
     Dates: start: 20040601
  10. SEROQUEL [Suspect]
     Indication: SLEEP DISORDER
     Route: 048
     Dates: start: 20030314
  11. SEROQUEL [Suspect]
     Indication: DEPRESSION
     Route: 048
     Dates: start: 20030314
  12. ZYPREXA [Concomitant]
     Dosage: 2.5 MG, 5 MG
     Dates: start: 20031101, end: 20031201

REACTIONS (8)
  - TYPE 2 DIABETES MELLITUS [None]
  - GASTROOESOPHAGEAL REFLUX DISEASE [None]
  - ARTHRITIS [None]
  - BLOOD CHOLESTEROL INCREASED [None]
  - OBESITY [None]
  - GLUCOSE TOLERANCE IMPAIRED [None]
  - APPENDICITIS [None]
  - BACK PAIN [None]
